FAERS Safety Report 18419918 (Version 3)
Quarter: 2021Q1

REPORT INFORMATION
  Report Type: Spontaneous
  Country: US (occurrence: US)
  Receive Date: 20201023
  Receipt Date: 20210312
  Transmission Date: 20210419
  Serious: Yes (Other)
  Sender: FDA-Public Use
  Company Number: US-PFIZER INC-2020410193

PATIENT
  Age: 25 Year
  Sex: Male

DRUGS (1)
  1. XELJANZ [Suspect]
     Active Substance: TOFACITINIB CITRATE
     Indication: COLITIS ULCERATIVE
     Dosage: 10 MG, 2X/DAY
     Route: 048
     Dates: start: 20200814

REACTIONS (6)
  - Haematochezia [Recovering/Resolving]
  - Rectal haemorrhage [Unknown]
  - Frequent bowel movements [Recovering/Resolving]
  - Anaemia [Unknown]
  - Depression [Unknown]
  - Discouragement [Unknown]
